FAERS Safety Report 7768688-5 (Version None)
Quarter: 2011Q3

REPORT INFORMATION
  Report Type: 
  Country: None (occurrence: None)
  Receive Date: 20110922
  Receipt Date: 20110713
  Transmission Date: 20111222
  Serious: No
  Sender: FDA-Public Use
  Company Number: US-ASTRAZENECA-2011SE41686

PATIENT
  Age: 56 Year
  Sex: Male

DRUGS (7)
  1. PREDNISONE [Concomitant]
  2. SEROQUEL [Suspect]
     Indication: SLEEP DISORDER
     Route: 048
     Dates: start: 20110101
  3. LIBRIUM [Concomitant]
  4. PLAQUENIL [Concomitant]
  5. PAIN MEDICATION [Concomitant]
  6. SEROQUEL [Suspect]
     Indication: ANXIETY
     Route: 048
     Dates: start: 20110101
  7. TRAMADOL HCL [Concomitant]

REACTIONS (4)
  - IRRITABILITY [None]
  - OFF LABEL USE [None]
  - DISTURBANCE IN ATTENTION [None]
  - DRUG EFFECT DECREASED [None]
